FAERS Safety Report 8558964 (Version 5)
Quarter: 2016Q1

REPORT INFORMATION
  Report Type: Spontaneous
  Country: JP (occurrence: JP)
  Receive Date: 20120511
  Receipt Date: 20160106
  Transmission Date: 20160526
  Serious: Yes (Death, Life-Threatening, Other)
  Sender: FDA-Public Use
  Company Number: JP-ROCHE-1067451

PATIENT
  Age: 69 Year
  Sex: Male
  Weight: 60 kg

DRUGS (17)
  1. ELPLAT [Suspect]
     Active Substance: OXALIPLATIN
     Indication: RECTAL CANCER METASTATIC
     Route: 041
     Dates: start: 20120330, end: 20120330
  2. NICORANDIL [Suspect]
     Active Substance: NICORANDIL
     Indication: ANGINA PECTORIS
     Dosage: DOSAGE IS UNCERTAIN.
     Route: 048
     Dates: end: 20120430
  3. REZALTAS [Suspect]
     Active Substance: AZELNIDIPINE\OLMESARTAN MEDOXOMIL
     Indication: HYPERTENSION
     Dosage: DOSAGE IS UNCERTAIN.
     Route: 048
     Dates: end: 20120430
  4. NATRIX [Suspect]
     Active Substance: INDAPAMIDE
     Indication: HYPERTENSION
     Dosage: DOSAGE IS UNCERTAIN.
     Route: 048
     Dates: end: 20120430
  5. XELODA [Suspect]
     Active Substance: CAPECITABINE
     Indication: RECTAL CANCER METASTATIC
     Route: 048
     Dates: start: 20120203, end: 20120216
  6. ELPLAT [Suspect]
     Active Substance: OXALIPLATIN
     Indication: RECTAL CANCER METASTATIC
     Route: 041
     Dates: start: 20120203, end: 20120203
  7. AMARYL [Suspect]
     Active Substance: GLIMEPIRIDE
     Indication: DIABETES MELLITUS
     Dosage: DOSAGE IS UNCERTAIN.
     Route: 048
     Dates: end: 20120430
  8. XELODA [Suspect]
     Active Substance: CAPECITABINE
     Indication: RECTAL CANCER METASTATIC
     Route: 048
     Dates: start: 20120112, end: 20120125
  9. XELODA [Suspect]
     Active Substance: CAPECITABINE
     Indication: RECTAL CANCER METASTATIC
     Route: 048
     Dates: start: 20120330, end: 20120412
  10. TAKEPRON [Suspect]
     Active Substance: LANSOPRAZOLE
     Indication: PRODUCT USED FOR UNKNOWN INDICATION
     Dosage: DOSAGE IS UNCERTAIN.
     Route: 048
     Dates: end: 20120430
  11. MUCOSTA [Concomitant]
     Active Substance: REBAMIPIDE
     Dosage: DOSAGE IS UNCERTAIN.
     Route: 048
  12. ELPLAT [Suspect]
     Active Substance: OXALIPLATIN
     Indication: RECTAL CANCER METASTATIC
     Route: 041
     Dates: start: 20120112, end: 20120112
  13. ELPLAT [Suspect]
     Active Substance: OXALIPLATIN
     Indication: RECTAL CANCER METASTATIC
     Route: 041
     Dates: start: 20120420, end: 20120420
  14. JANUVIA [Suspect]
     Active Substance: SITAGLIPTIN PHOSPHATE
     Indication: DIABETES MELLITUS
     Dosage: DOSAGE IS UNCERTAIN.
     Route: 048
     Dates: end: 20120430
  15. NAIXAN [Concomitant]
     Active Substance: NAPROXEN SODIUM
     Dosage: DOSAGE IS UNCERTAIN.
     Route: 048
  16. XELODA [Suspect]
     Active Substance: CAPECITABINE
     Indication: RECTAL CANCER METASTATIC
     Route: 048
     Dates: start: 20120420, end: 20120429
  17. HARNAL [Concomitant]
     Active Substance: TAMSULOSIN HYDROCHLORIDE
     Indication: BENIGN PROSTATIC HYPERPLASIA
     Dosage: DOSAGE IS UNCERTAIN.
     Route: 048

REACTIONS (6)
  - Drug-induced liver injury [Unknown]
  - Acute hepatic failure [Not Recovered/Not Resolved]
  - Lymphangiosis carcinomatosa [Fatal]
  - Pancytopenia [Unknown]
  - Disseminated intravascular coagulation [Not Recovered/Not Resolved]
  - Hepatic encephalopathy [Unknown]

NARRATIVE: CASE EVENT DATE: 20120430
